FAERS Safety Report 10009925 (Version 1)
Quarter: 2014Q1

REPORT INFORMATION
  Report Type: Spontaneous
  Country: US (occurrence: US)
  Receive Date: 20140313
  Receipt Date: 20140313
  Transmission Date: 20141002
  Serious: No
  Sender: FDA-Public Use
  Company Number: US-009507513-1403USA004428

PATIENT
  Sex: Male

DRUGS (1)
  1. DULERA [Suspect]
     Dosage: 100 MICROGRAM / 2 PUFFS TWICE A DAY
     Route: 055
     Dates: start: 201309

REACTIONS (3)
  - Incorrect dose administered by device [Unknown]
  - Product quality issue [Unknown]
  - No adverse event [Unknown]
